FAERS Safety Report 15192799 (Version 4)
Quarter: 2018Q3

REPORT INFORMATION
  Report Type: Spontaneous
  Country: US (occurrence: US)
  Receive Date: 20180725
  Receipt Date: 20180903
  Transmission Date: 20181010
  Serious: No
  Sender: FDA-Public Use
  Company Number: US-TEVA-2018-US-930730

PATIENT
  Sex: Female

DRUGS (2)
  1. RISPERIDONE. [Concomitant]
     Active Substance: RISPERIDONE
     Route: 065
  2. CLONAZEPAM. [Suspect]
     Active Substance: CLONAZEPAM
     Dosage: 90 TABLETS
     Route: 065

REACTIONS (7)
  - Insomnia [Unknown]
  - Injury [Unknown]
  - Libido decreased [Unknown]
  - Memory impairment [Unknown]
  - Amnesia [Unknown]
  - Loss of personal independence in daily activities [Unknown]
  - Nuclear magnetic resonance imaging brain abnormal [Unknown]
